FAERS Safety Report 7332251-0 (Version None)
Quarter: 2011Q1

REPORT INFORMATION
  Report Type: 
  Country: None (occurrence: None)
  Receive Date: 20110304
  Receipt Date: 20110225
  Transmission Date: 20110831
  Serious: Yes (Other)
  Sender: FDA-Public Use
  Company Number: GB-ROCHE-669969

PATIENT
  Age: 78 Year
  Sex: Female

DRUGS (6)
  1. PYRIDOXINE [Concomitant]
     Indication: COLON CANCER METASTATIC
     Dates: start: 20080301
  2. OXALIPLATIN [Suspect]
     Indication: COLORECTAL CANCER METASTATIC
     Dosage: ONE PER CYCLICAL
     Route: 065
     Dates: start: 20090101
  3. OXALIPLATIN [Suspect]
     Route: 065
  4. CAPECITABINE [Suspect]
     Dosage: FOR 9 DAYS AND EVERY TWO WEEKS
     Route: 065
     Dates: start: 20090101
  5. CAPECITABINE [Suspect]
     Route: 065
  6. CAPECITABINE [Suspect]
     Indication: COLON CANCER METASTATIC
     Dosage: FOR 14 DAYS EVERY 3 WEEKS AND RECEIVED EIGHT CYCLES.
     Route: 065
     Dates: start: 20080301

REACTIONS (8)
  - DISEASE PROGRESSION [None]
  - NERVOUS SYSTEM DISORDER [None]
  - LIVER DISORDER [None]
  - NEUROTOXICITY [None]
  - BALANCE DISORDER [None]
  - CEREBELLAR SYNDROME [None]
  - ATAXIA [None]
  - ISCHAEMIA [None]
